FAERS Safety Report 5157672-6 (Version None)
Quarter: 2006Q4

REPORT INFORMATION
  Report Type: 
  Country: None (occurrence: None)
  Receive Date: 20061127
  Receipt Date: 20051012
  Transmission Date: 20070319
  Serious: Yes (Hospitalization)
  Sender: FDA-Public Use
  Company Number: US-ROCHE-421033

PATIENT
  Age: 60 Year
  Sex: Male
  Weight: 93.9 kg

DRUGS (8)
  1. DEMADEX [Suspect]
     Indication: CARDIOVASCULAR DISORDER
     Route: 048
  2. NESIRITIDE [Suspect]
     Indication: CARDIAC FAILURE
     Dosage: DOSE BLINDED.
     Route: 042
     Dates: start: 20050315
  3. LISINOPRIL [Suspect]
     Indication: CARDIOVASCULAR DISORDER
     Route: 048
  4. ZAROXOLYN [Suspect]
     Indication: CARDIOVASCULAR DISORDER
     Route: 048
  5. BETAPACE [Suspect]
     Indication: CARDIOVASCULAR DISORDER
     Route: 048
  6. K-DUR 10 [Concomitant]
     Route: 048
  7. PRAVACHOL [Concomitant]
     Indication: CARDIOVASCULAR DISORDER
     Route: 048
  8. ALLOPURINOL [Concomitant]
     Indication: GOUT
     Route: 048

REACTIONS (9)
  - ALANINE AMINOTRANSFERASE INCREASED [None]
  - ASPARTATE AMINOTRANSFERASE INCREASED [None]
  - BLOOD ALKALINE PHOSPHATASE INCREASED [None]
  - BLOOD GLUCOSE INCREASED [None]
  - BLOOD SODIUM DECREASED [None]
  - BLOOD UREA INCREASED [None]
  - CARDIOVASCULAR DISORDER [None]
  - HYPOTENSION [None]
  - RESPIRATORY DISTRESS [None]
